FAERS Safety Report 20213443 (Version 2)
Quarter: 2022Q1

REPORT INFORMATION
  Report Type: Spontaneous
  Country: RU (occurrence: RU)
  Receive Date: 20211221
  Receipt Date: 20220121
  Transmission Date: 20220424
  Serious: Yes (Hospitalization)
  Sender: FDA-Public Use
  Company Number: RU-JNJFOC-20211229901

PATIENT
  Age: 50 Year
  Sex: Male
  Weight: 76 kg

DRUGS (7)
  1. SIRTURO [Suspect]
     Active Substance: BEDAQUILINE FUMARATE
     Indication: Tuberculosis
     Dosage: DOSE 200
     Route: 048
     Dates: start: 20210416
  2. LEVOFLOXACIN [Suspect]
     Active Substance: LEVOFLOXACIN
     Indication: Tuberculosis
     Dosage: DOSE-1000
     Route: 048
     Dates: start: 20210416
  3. CLOFAZIMINE [Suspect]
     Active Substance: CLOFAZIMINE
     Indication: Tuberculosis
     Dosage: DOSE: 100
     Route: 048
     Dates: start: 20210416
  4. LINEZOLID [Suspect]
     Active Substance: LINEZOLID
     Indication: Tuberculosis
     Dosage: DOSE: 600
     Route: 048
     Dates: start: 20210416, end: 20211210
  5. ENALAPRIL [Concomitant]
     Active Substance: ENALAPRIL
     Indication: Hypotension
     Route: 048
     Dates: start: 20210416
  6. METOPROLOL [Concomitant]
     Active Substance: METOPROLOL
     Indication: Hypotension
     Route: 048
     Dates: start: 20210416
  7. BENFOTIAMINE\CYANOCOBALAMIN [Concomitant]
     Active Substance: BENFOTIAMINE\CYANOCOBALAMIN
     Indication: Product used for unknown indication
     Route: 065
     Dates: start: 20210416

REACTIONS (4)
  - Paraplegia [Recovered/Resolved]
  - Intervertebral disc protrusion [Recovered/Resolved]
  - Pulmonary tuberculosis [Unknown]
  - Spinal osteoarthritis [Unknown]

NARRATIVE: CASE EVENT DATE: 20211209
